FAERS Safety Report 24999654 (Version 1)
Quarter: 2025Q1

REPORT INFORMATION
  Report Type: Spontaneous
  Country: US (occurrence: US)
  Receive Date: 20250222
  Receipt Date: 20250222
  Transmission Date: 20250408
  Serious: No
  Sender: SANOFI AVENTIS
  Company Number: US-SA-2025SA046835

PATIENT
  Age: 63 Year
  Sex: Female

DRUGS (11)
  1. DUPIXENT [Suspect]
     Active Substance: DUPILUMAB
     Indication: Asthma
     Route: 058
     Dates: start: 20240718
  2. PREDNISONE [Concomitant]
     Active Substance: PREDNISONE
  3. VITAMINS [Concomitant]
     Active Substance: VITAMINS
  4. ZYRTEC [Concomitant]
     Active Substance: CETIRIZINE HYDROCHLORIDE
  5. MONTELUKAST [Concomitant]
     Active Substance: MONTELUKAST
  6. TRELEGY ELLIPTA [Concomitant]
     Active Substance: FLUTICASONE FUROATE\UMECLIDINIUM BROMIDE\VILANTEROL TRIFENATATE
  7. ALBUTEROL [Concomitant]
     Active Substance: ALBUTEROL
  8. PANTOPRAZOLE [Concomitant]
     Active Substance: PANTOPRAZOLE
  9. PATADAY [Concomitant]
     Active Substance: OLOPATADINE HYDROCHLORIDE
  10. IPRATROPIUM [Concomitant]
     Active Substance: IPRATROPIUM
  11. VITAMIN D3 [Concomitant]
     Active Substance: CHOLECALCIFEROL

REACTIONS (1)
  - Asthma [Unknown]

NARRATIVE: CASE EVENT DATE: 20250127
